FAERS Safety Report 10650961 (Version 2)
Quarter: 2014Q4

REPORT INFORMATION
  Report Type: Spontaneous
  Country: US (occurrence: US)
  Receive Date: 20141215
  Receipt Date: 20141218
  Transmission Date: 20150529
  Serious: Yes (Other)
  Sender: FDA-Public Use
  Company Number: US-ASTRAZENECA-2014SE94112

PATIENT
  Sex: Male

DRUGS (4)
  1. PRILOSEC [Suspect]
     Active Substance: OMEPRAZOLE MAGNESIUM
     Indication: DUODENAL ULCER
     Dosage: DAILY OR TWO TIMES A DAY
     Route: 048
  2. NEXIUM [Suspect]
     Active Substance: ESOMEPRAZOLE MAGNESIUM
     Indication: DYSPEPSIA
     Route: 048
     Dates: start: 201412
  3. PRILOSEC [Suspect]
     Active Substance: OMEPRAZOLE MAGNESIUM
     Indication: DUODENAL ULCER
     Route: 048
  4. PRILOSEC OTC [Suspect]
     Active Substance: OMEPRAZOLE MAGNESIUM
     Dosage: DAILY
     Route: 048

REACTIONS (20)
  - Oesophageal disorder [Unknown]
  - Drug ineffective [Unknown]
  - Productive cough [Unknown]
  - Fatigue [Recovered/Resolved]
  - Toothache [Unknown]
  - Bronchitis [Unknown]
  - Decreased appetite [Unknown]
  - Weight decreased [Unknown]
  - Dyspepsia [Unknown]
  - Arthralgia [Unknown]
  - Nausea [Unknown]
  - Duodenal ulcer [Unknown]
  - Fatigue [Unknown]
  - Loss of libido [Unknown]
  - Malaise [Unknown]
  - Dental caries [Unknown]
  - Dyspnoea [Unknown]
  - Intentional product misuse [Unknown]
  - Pain [Unknown]
  - Influenza [Unknown]
